FAERS Safety Report 4685412-3 (Version None)
Quarter: 2005Q2

REPORT INFORMATION
  Report Type: 
  Country: None (occurrence: None)
  Receive Date: 20050608
  Receipt Date: 20050606
  Transmission Date: 20051028
  Serious: Yes (Hospitalization)
  Sender: FDA-Public Use
  Company Number: FR-GLAXOSMITHKLINE-B0383722A

PATIENT
  Age: 70 Year
  Sex: Male

DRUGS (3)
  1. AUGMENTIN [Suspect]
     Indication: ILL-DEFINED DISORDER
     Route: 048
     Dates: start: 20050101, end: 20050101
  2. ZOCOR [Concomitant]
     Route: 048
  3. COAPROVEL [Concomitant]
     Indication: HYPERTENSION
     Route: 048

REACTIONS (3)
  - HEPATITIS CHOLESTATIC [None]
  - INFLAMMATION [None]
  - PYREXIA [None]
